FAERS Safety Report 18694160 (Version 1)
Quarter: 2021Q1

REPORT INFORMATION
  Report Type: Spontaneous
  Country: US (occurrence: US)
  Receive Date: 20210104
  Receipt Date: 20210104
  Transmission Date: 20210419
  Serious: Yes (Other)
  Sender: FDA-Public Use
  Company Number: NVSC2020US342852

PATIENT
  Age: 56 Year
  Sex: Female

DRUGS (5)
  1. XGEVA [Concomitant]
     Active Substance: DENOSUMAB
     Indication: PRODUCT USED FOR UNKNOWN INDICATION
     Dosage: UNK
     Route: 065
  2. PIQRAY [Suspect]
     Active Substance: ALPELISIB
     Indication: MALIGNANT NIPPLE NEOPLASM FEMALE
  3. ADVIL [Concomitant]
     Active Substance: IBUPROFEN
     Indication: PRODUCT USED FOR UNKNOWN INDICATION
     Dosage: UNK
     Route: 065
  4. LYNPARZA [Concomitant]
     Active Substance: OLAPARIB
     Indication: PRODUCT USED FOR UNKNOWN INDICATION
     Dosage: UNK
     Route: 065
     Dates: start: 20201210
  5. PIQRAY [Suspect]
     Active Substance: ALPELISIB
     Indication: OESTROGEN RECEPTOR ASSAY POSITIVE
     Dosage: 2 DF, QD (150X2) (TOOK 2 TABLETS 300 MG BY MOUTH DAILY)
     Route: 048
     Dates: start: 20201026, end: 20201116

REACTIONS (8)
  - Diarrhoea [Recovered/Resolved]
  - Pruritus [Recovered/Resolved]
  - Measles [Recovered/Resolved]
  - Vomiting [Recovered/Resolved]
  - Chills [Recovered/Resolved]
  - Dizziness [Recovered/Resolved]
  - Erythema [Recovered/Resolved]
  - Rash [Recovered/Resolved]

NARRATIVE: CASE EVENT DATE: 20201104
